FAERS Safety Report 7982764-3 (Version None)
Quarter: 2011Q4

REPORT INFORMATION
  Report Type: 
  Country: None (occurrence: None)
  Receive Date: 20111215
  Receipt Date: 20111213
  Transmission Date: 20120403
  Serious: Yes (Other)
  Sender: FDA-Public Use
  Company Number: US-PFIZER INC-2011290327

PATIENT
  Sex: Male

DRUGS (4)
  1. FLECTOR [Suspect]
     Dosage: UNK, 1X/DAY
  2. CELEBREX [Suspect]
     Dosage: UNK
  3. FLECTOR [Suspect]
     Dosage: UNK
  4. CELEBREX [Suspect]
     Dosage: UNK

REACTIONS (2)
  - BACK DISORDER [None]
  - BLOOD GLUCOSE ABNORMAL [None]
